FAERS Safety Report 15901161 (Version 1)
Quarter: 2019Q1

REPORT INFORMATION
  Report Type: Report from Study
  Country: US (occurrence: US)
  Receive Date: 20190201
  Receipt Date: 20190201
  Transmission Date: 20190417
  Serious: Yes (Hospitalization)
  Sender: FDA-Public Use
  Company Number: US-TAIHO ONCOLOGY  INC-EU-2019-00304

PATIENT
  Age: 65 Year
  Sex: Female
  Weight: 70.82 kg

DRUGS (1)
  1. LONSURF [Suspect]
     Active Substance: TIPIRACIL HYDROCHLORIDE\TRIFLURIDINE
     Indication: COLON CANCER
     Dosage: CYCLE 2 STARTED ON 06/DEC/2018?LONSURF INTERRUPTED ON AN UNKNOWN DAY
     Route: 048

REACTIONS (1)
  - Coma [Not Recovered/Not Resolved]

NARRATIVE: CASE EVENT DATE: 20190122
